FAERS Safety Report 4348327-6 (Version None)
Quarter: 2004Q2

REPORT INFORMATION
  Report Type: 
  Country: None (occurrence: None)
  Receive Date: 20040427
  Receipt Date: 20030612
  Transmission Date: 20050107
  Serious: Yes (Other)
  Sender: FDA-Public Use
  Company Number: NL-GLAXOSMITHKLINE-B0302232A

PATIENT
  Age: 39 Year
  Sex: Female

DRUGS (2)
  1. PAROXETINE HCL [Suspect]
     Indication: DRUG USE FOR UNKNOWN INDICATION
     Dosage: 10MG PER DAY
     Route: 048
  2. DOXYCYCLINE [Concomitant]
     Dosage: 100MG PER DAY
     Route: 048
     Dates: start: 20030516, end: 20030523

REACTIONS (5)
  - DRUG EXPOSURE DURING PREGNANCY [None]
  - HAEMOGLOBIN DECREASED [None]
  - POSTPARTUM HAEMORRHAGE [None]
  - PREGNANCY [None]
  - RETAINED PLACENTA OR MEMBRANES [None]
